FAERS Safety Report 19400350 (Version 1)
Quarter: 2021Q2

REPORT INFORMATION
  Report Type: Report from Study
  Country: None (occurrence: US)
  Receive Date: 20210610
  Receipt Date: 20210610
  Transmission Date: 20210717
  Serious: Yes (Life-Threatening, Other)
  Sender: FDA-Public Use
  Company Number: US-ABBVIE-21K-163-3854429-00

PATIENT
  Age: 47 Year
  Sex: Female
  Weight: 65.83 kg

DRUGS (10)
  1. VITAMIN D [Concomitant]
     Active Substance: VITAMIN D NOS
     Indication: PROPHYLAXIS
  2. LIPITOR [Concomitant]
     Active Substance: ATORVASTATIN CALCIUM
     Indication: BLOOD TRIGLYCERIDES
  3. FOLIC ACID. [Concomitant]
     Active Substance: FOLIC ACID
     Indication: CARDIOVASCULAR EVENT PROPHYLAXIS
  4. MULTIVITAMINS [Concomitant]
     Active Substance: VITAMINS
     Indication: VITAMIN SUPPLEMENTATION
  5. VITAMIN D [Concomitant]
     Active Substance: VITAMIN D NOS
     Indication: VITAMIN SUPPLEMENTATION
  6. FISH OIL [Concomitant]
     Active Substance: FISH OIL
     Indication: SUPPLEMENTATION THERAPY
  7. HUMIRA [Suspect]
     Active Substance: ADALIMUMAB
     Indication: CROHN^S DISEASE
     Route: 058
     Dates: start: 201401
  8. POTASSIUM CHLORIDE. [Concomitant]
     Active Substance: POTASSIUM CHLORIDE
     Indication: CROHN^S DISEASE
  9. POTASSIUM CHLORIDE. [Concomitant]
     Active Substance: POTASSIUM CHLORIDE
     Indication: MINERAL SUPPLEMENTATION
  10. LIPITOR [Concomitant]
     Active Substance: ATORVASTATIN CALCIUM
     Indication: BLOOD CHOLESTEROL INCREASED

REACTIONS (13)
  - Cerebrovascular accident [Recovered/Resolved]
  - Aphasia [Recovering/Resolving]
  - Paraesthesia [Recovered/Resolved]
  - Wrist deformity [Recovered/Resolved]
  - Memory impairment [Recovered/Resolved]
  - Facial paralysis [Recovered/Resolved]
  - Cholelithiasis [Recovered/Resolved]
  - Stress [Not Recovered/Not Resolved]
  - Crohn^s disease [Recovered/Resolved]
  - Road traffic accident [Recovered/Resolved]
  - Hypoaesthesia [Recovered/Resolved]
  - Post-traumatic neck syndrome [Recovering/Resolving]
  - Headache [Recovered/Resolved]

NARRATIVE: CASE EVENT DATE: 20150220
